FAERS Safety Report 5803694-9 (Version None)
Quarter: 2008Q3

REPORT INFORMATION
  Report Type: 
  Country: None (occurrence: None)
  Receive Date: 20080708
  Receipt Date: 20080703
  Transmission Date: 20090109
  Serious: Yes (Other)
  Sender: FDA-Public Use
  Company Number: RO-ABBOTT-07P-135-0365245-00

PATIENT
  Sex: Male
  Weight: 60 kg

DRUGS (14)
  1. SEVOFLURANE [Suspect]
     Indication: MAINTENANCE OF ANAESTHESIA
     Route: 055
     Dates: start: 20070416, end: 20070416
  2. ROCURONIUM BROMIDE [Concomitant]
     Indication: GENERAL ANAESTHESIA
     Route: 042
     Dates: start: 20070416, end: 20070416
  3. ROCURONIUM BROMIDE [Concomitant]
     Indication: HYPOTONIA
  4. ROCURONIUM BROMIDE [Concomitant]
     Indication: MAINTENANCE OF ANAESTHESIA
  5. FENTANYL [Concomitant]
     Indication: GENERAL ANAESTHESIA
     Route: 042
     Dates: start: 20070416, end: 20070416
  6. FENTANYL [Concomitant]
     Indication: MAINTENANCE OF ANAESTHESIA
  7. FENTANYL [Concomitant]
     Indication: INDUCTION OF ANAESTHESIA
  8. MIDAZOLAM HCL [Concomitant]
     Indication: GENERAL ANAESTHESIA
     Route: 042
     Dates: start: 20070416, end: 20070416
  9. MIDAZOLAM HCL [Concomitant]
     Indication: INDUCTION OF ANAESTHESIA
  10. PROPOFOL [Concomitant]
     Indication: GENERAL ANAESTHESIA
     Dates: start: 20070416, end: 20070416
  11. PROPOFOL [Concomitant]
     Indication: INDUCTION OF ANAESTHESIA
  12. ROCURONIUM BROMIDE [Concomitant]
     Indication: INDUCTION OF ANAESTHESIA
     Dates: start: 20070416, end: 20070416
  13. ROCURONIUM BROMIDE [Concomitant]
     Indication: MAINTENANCE OF ANAESTHESIA
  14. OXYGEN [Concomitant]
     Indication: MAINTENANCE OF ANAESTHESIA
     Dates: start: 20070416, end: 20070416

REACTIONS (1)
  - HYPERTHERMIA MALIGNANT [None]
